FAERS Safety Report 17121718 (Version 1)
Quarter: 2019Q4

REPORT INFORMATION
  Report Type: Spontaneous
  Country: ES (occurrence: ES)
  Receive Date: 20191206
  Receipt Date: 20191206
  Transmission Date: 20200122
  Serious: Yes (Hospitalization, Other)
  Sender: FDA-Public Use
  Company Number: NVSC2019ES053401

PATIENT
  Sex: Female

DRUGS (2)
  1. TACROLIMUS. [Suspect]
     Active Substance: TACROLIMUS
     Indication: RENAL TRANSPLANT
     Dosage: 18 MG, QD
     Route: 048
     Dates: start: 20190926, end: 20190927
  2. TACROLIMUS. [Suspect]
     Active Substance: TACROLIMUS
     Dosage: 2 MG, QD
     Route: 042
     Dates: start: 20190927, end: 20190927

REACTIONS (2)
  - Lymphoproliferative disorder [Unknown]
  - Drug level increased [Unknown]

NARRATIVE: CASE EVENT DATE: 20190927
